FAERS Safety Report 19459399 (Version 1)
Quarter: 2021Q2

REPORT INFORMATION
  Report Type: Spontaneous
  Country: US (occurrence: US)
  Receive Date: 20210625
  Receipt Date: 20210625
  Transmission Date: 20210717
  Serious: Yes (Death)
  Sender: FDA-Public Use
  Company Number: None

PATIENT
  Age: 55 Year
  Sex: Female
  Weight: 79.2 kg

DRUGS (6)
  1. FLUOROURACIL. [Suspect]
     Active Substance: FLUOROURACIL
     Indication: COLON CANCER
     Dosage: ?          OTHER FREQUENCY:TOTAL DOSE Q 14 D;?
     Route: 042
     Dates: start: 20210621, end: 20210623
  2. LEUCOVORIN 756MG IV [Concomitant]
     Dates: start: 20210621, end: 20210621
  3. FOSAPREPITANT 150MG IV [Concomitant]
     Dates: start: 20210621, end: 20210621
  4. DEXAMETHASONE 10MG IV [Concomitant]
     Dates: start: 20210621, end: 20210621
  5. PALONOSETRON 0.25MG IVP [Concomitant]
     Dates: start: 20210621, end: 20210621
  6. OXALIPLATIN. [Suspect]
     Active Substance: OXALIPLATIN
     Indication: COLON CANCER
     Dosage: ?          OTHER FREQUENCY:EVERY 14 DAYS;?
     Route: 042
     Dates: start: 20210621, end: 20210621

REACTIONS (10)
  - Asthenia [None]
  - Nausea [None]
  - Gait inability [None]
  - Tachypnoea [None]
  - Hypoxia [None]
  - Neurological symptom [None]
  - Tremor [None]
  - Vomiting [None]
  - Seizure [None]
  - Facial paresis [None]

NARRATIVE: CASE EVENT DATE: 20210624
